FAERS Safety Report 24549469 (Version 1)
Quarter: 2024Q4

REPORT INFORMATION
  Report Type: Spontaneous
  Country: US (occurrence: None)
  Receive Date: 20241025
  Receipt Date: 20241025
  Transmission Date: 20250114
  Serious: Yes (Life-Threatening, Hospitalization)
  Sender: INFORLIFE
  Company Number: US-INFO-20240321

PATIENT
  Age: 60 Year
  Sex: Male

DRUGS (6)
  1. FENTANYL [Interacting]
     Active Substance: FENTANYL
     Indication: Analgesic therapy
  2. OXYCODONE [Interacting]
     Active Substance: OXYCODONE
     Indication: Analgesic therapy
  3. MEPERIDINE [Interacting]
     Active Substance: MEPERIDINE
     Indication: Analgesic therapy
  4. FLUCONAZOLE [Interacting]
     Active Substance: FLUCONAZOLE
  5. VENLAFAXINE [Interacting]
     Active Substance: VENLAFAXINE HYDROCHLORIDE
  6. COBICISTAT [Interacting]
     Active Substance: COBICISTAT
     Indication: HIV infection

REACTIONS (2)
  - Serotonin syndrome [Recovering/Resolving]
  - Drug interaction [Recovering/Resolving]
